FAERS Safety Report 18775492 (Version 1)
Quarter: 2021Q1

REPORT INFORMATION
  Report Type: Spontaneous
  Country: US (occurrence: US)
  Receive Date: 20210122
  Receipt Date: 20210122
  Transmission Date: 20210419
  Serious: No
  Sender: FDA-Public Use
  Company Number: US-ACCORD-192374

PATIENT
  Age: 46 Year
  Sex: Male
  Weight: 200 kg

DRUGS (4)
  1. ESCITALOPRAM [Concomitant]
     Active Substance: ESCITALOPRAM OXALATE
     Indication: DEPRESSION
     Dosage: DATE STARTED : YEARS
     Route: 048
  2. ELIQUIS [Concomitant]
     Active Substance: APIXABAN
     Indication: COAGULOPATHY
     Route: 048
     Dates: start: 2019
  3. CLOZAPINE ACCORD [Suspect]
     Active Substance: CLOZAPINE
     Indication: PSYCHOTIC DISORDER
     Dosage: TAKES EVERY DAY
     Route: 048
  4. GABAPENTIN. [Concomitant]
     Active Substance: GABAPENTIN
     Indication: ANXIETY
     Dosage: STARTED FROM MANY YEARS
     Route: 048

REACTIONS (4)
  - Condition aggravated [Unknown]
  - Impaired work ability [Unknown]
  - Drug ineffective [Unknown]
  - Product substitution issue [Unknown]
